FAERS Safety Report 22905407 (Version 2)
Quarter: 2024Q3

REPORT INFORMATION
  Report Type: Spontaneous
  Country: FR (occurrence: FR)
  Receive Date: 20230905
  Receipt Date: 20240706
  Transmission Date: 20241017
  Serious: Yes (Death, Other)
  Sender: AUROBINDO
  Company Number: FR-AFSSAPS-PA2023001666

PATIENT
  Age: 68 Year
  Sex: Male
  Weight: 79.5 kg

DRUGS (8)
  1. DOCETAXEL [Suspect]
     Active Substance: DOCETAXEL\DOCETAXEL ANHYDROUS
     Indication: Tongue neoplasm
     Dosage: UNK
     Route: 065
     Dates: start: 20230327, end: 20230327
  2. CISPLATIN [Suspect]
     Active Substance: CISPLATIN
     Indication: Tongue neoplasm
     Dosage: UNK
     Route: 065
     Dates: start: 20230327
  3. FLUOROURACIL [Suspect]
     Active Substance: FLUOROURACIL
     Indication: Tongue neoplasm
     Dosage: UNK
     Route: 065
     Dates: start: 20230327
  4. FUROSEMIDE [Concomitant]
     Active Substance: FUROSEMIDE
     Indication: Product used for unknown indication
     Dosage: 1 DOSAGE FORM, ONCE A DAY
     Route: 048
  5. LANSOPRAZOLE [Concomitant]
     Active Substance: LANSOPRAZOLE
     Indication: Product used for unknown indication
     Dosage: 15 MILLIGRAM, TWO TIMES A DAY
     Route: 048
  6. XARELTO [Concomitant]
     Active Substance: RIVAROXABAN
     Indication: Product used for unknown indication
     Dosage: 1 DOSAGE FORM, ONCE A DAY
     Route: 048
  7. DAPAGLIFLOZIN [Concomitant]
     Active Substance: DAPAGLIFLOZIN
     Indication: Product used for unknown indication
     Dosage: 10 MILLIGRAM, ONCE A DAY
     Route: 048
  8. BISOPROLOL FUMARATE\PERINDOPRIL ARGININE [Concomitant]
     Active Substance: BISOPROLOL FUMARATE\PERINDOPRIL ARGININE
     Indication: Product used for unknown indication
     Dosage: 1 DOSAGE FORM, ONCE A DAY
     Route: 048

REACTIONS (1)
  - Gastrointestinal necrosis [Fatal]

NARRATIVE: CASE EVENT DATE: 20230405
